FAERS Safety Report 8019803-X (Version None)
Quarter: 2012Q1

REPORT INFORMATION
  Report Type: 
  Country: None (occurrence: None)
  Receive Date: 20120103
  Receipt Date: 20120103
  Transmission Date: 20120608
  Serious: Yes (Other)
  Sender: FDA-Public Use
  Company Number: AU-PFIZER INC-2011285884

PATIENT
  Age: 42 Year
  Sex: Female
  Weight: 110 kg

DRUGS (6)
  1. PRISTIQ [Suspect]
     Indication: ANXIETY
     Dosage: 100 MG, 1X/DAY
     Route: 048
     Dates: start: 20091201, end: 20110805
  2. PRISTIQ [Suspect]
     Indication: DEPRESSION
     Dosage: 150 MG, UNK
     Route: 048
     Dates: end: 20091130
  3. VALPROATE SODIUM [Concomitant]
     Indication: EPILEPSY
     Dosage: 200 MG, IN THE MORNING AND 400MG AT NIGHT
     Route: 048
  4. OLANZAPINE [Concomitant]
     Indication: MOOD ALTERED
     Dosage: 10 MG, 1X/DAY
  5. NITRAZEPAM [Concomitant]
     Indication: ANXIETY
     Dosage: 5 MG, THREE AS NEEDED
     Route: 048
  6. SEREPAX [Concomitant]
     Indication: ANXIETY
     Dosage: 30 MG, ONE TO TWO DOSES AT NIGHT
     Route: 048

REACTIONS (4)
  - CONVULSION [None]
  - HYPONATRAEMIA [None]
  - CERVICAL DYSPLASIA [None]
  - WEIGHT INCREASED [None]
